FAERS Safety Report 6373798-3 (Version None)
Quarter: 2009Q3

REPORT INFORMATION
  Report Type: 
  Country: None (occurrence: None)
  Receive Date: 20090924
  Receipt Date: 20090604
  Transmission Date: 20100115
  Serious: No
  Sender: FDA-Public Use
  Company Number: US-ASTRAZENECA-2009UW14370

PATIENT
  Age: 49 Year
  Sex: Female

DRUGS (6)
  1. SEROQUEL [Suspect]
     Route: 048
     Dates: start: 20090201
  2. SEROQUEL [Suspect]
     Dosage: TITRATED TO 600MG
     Route: 048
     Dates: start: 20090401
  3. LAMICTAL [Concomitant]
  4. STRATTERA [Concomitant]
  5. LEVOTHYROXINE SODIUM [Concomitant]
  6. TOFRANIL [Concomitant]

REACTIONS (2)
  - BINGE EATING [None]
  - WEIGHT INCREASED [None]
